FAERS Safety Report 7835661-8 (Version None)
Quarter: 2011Q4

REPORT INFORMATION
  Report Type: 
  Country: None (occurrence: None)
  Receive Date: 20111024
  Receipt Date: 20111017
  Transmission Date: 20120403
  Serious: Yes (Other)
  Sender: FDA-Public Use
  Company Number: PHHY2011JP88352

PATIENT
  Age: 81 Year
  Sex: Female

DRUGS (4)
  1. FLUOROURACIL [Concomitant]
  2. ZOLEDRONIC ACID [Suspect]
     Indication: METASTASES TO BONE
     Route: 041
  3. CYCLOPHOSPHAMIDE [Concomitant]
  4. ADRIAMYCIN PFS [Concomitant]

REACTIONS (3)
  - GENERAL PHYSICAL HEALTH DETERIORATION [None]
  - PAIN [None]
  - BONE MARROW FAILURE [None]
